FAERS Safety Report 24024301 (Version 3)
Quarter: 2024Q3

REPORT INFORMATION
  Report Type: Report from Study
  Country: AT (occurrence: AT)
  Receive Date: 20240627
  Receipt Date: 20240710
  Transmission Date: 20241016
  Serious: No
  Sender: ROCHE
  Company Number: AT-ROCHE-3197407

PATIENT
  Age: 53 Year
  Sex: Female
  Weight: 69.0 kg

DRUGS (23)
  1. ALECTINIB [Suspect]
     Active Substance: ALECTINIB
     Indication: Lung cancer metastatic
     Route: 048
     Dates: start: 20220128
  2. ALECTINIB [Suspect]
     Active Substance: ALECTINIB
     Route: 048
     Dates: start: 20190515
  3. OXAZEPAM [Concomitant]
     Active Substance: OXAZEPAM
     Indication: Depressed mood
     Route: 048
     Dates: start: 20220916
  4. XGEVA [Concomitant]
     Active Substance: DENOSUMAB
     Dosage: FREQUENCY TEXT:UNKNOWN
     Route: 058
     Dates: end: 20220820
  5. CLINDAMYCIN [Concomitant]
     Active Substance: CLINDAMYCIN
     Route: 048
     Dates: start: 20220820, end: 202209
  6. FENTANYL [Concomitant]
     Active Substance: FENTANYL\FENTANYL CITRATE
     Dosage: 75 OTHER
     Route: 062
     Dates: start: 20220819
  7. MORPHINE [Concomitant]
     Active Substance: MORPHINE
     Route: 048
     Dates: end: 20240108
  8. NOVALGIN (AUSTRIA) [Concomitant]
     Route: 048
  9. DRONABINOL [Concomitant]
     Active Substance: DRONABINOL
     Route: 048
  10. DEXAMETHASONE [Concomitant]
     Active Substance: DEXAMETHASONE
     Route: 048
  11. PANTOPRAZOLE [Concomitant]
     Active Substance: PANTOPRAZOLE
     Route: 048
  12. PASPERTIN [Concomitant]
     Route: 048
  13. POLYETHYLENE GLYCOL 3350\POTASSIUM CHLORIDE\SODIUM BICARBONATE\SODIUM [Concomitant]
     Active Substance: POLYETHYLENE GLYCOL 3350\POTASSIUM CHLORIDE\SODIUM BICARBONATE\SODIUM CHLORIDE
     Route: 048
  14. HYDROMORPHONE HYDROCHLORIDE [Concomitant]
     Active Substance: HYDROMORPHONE HYDROCHLORIDE
     Route: 048
     Dates: start: 20240108
  15. HYDROMORPHONE HYDROCHLORIDE [Concomitant]
     Active Substance: HYDROMORPHONE HYDROCHLORIDE
     Route: 048
  16. LYRICA [Concomitant]
     Active Substance: PREGABALIN
     Route: 048
     Dates: start: 20240108
  17. ATARAX [Concomitant]
     Active Substance: HYDROXYZINE HYDROCHLORIDE
     Indication: Restlessness
     Dosage: FREQUENCY TEXT:PRN
     Route: 048
     Dates: start: 20231004, end: 20240108
  18. MELATONIN [Concomitant]
     Active Substance: MELATONIN
     Indication: Insomnia
     Dosage: FREQUENCY TEXT:PRN
     Route: 048
     Dates: start: 20231018
  19. VITAMIN D3;VITAMIN K2 [Concomitant]
     Route: 048
     Dates: start: 20231018
  20. VITAMIN C [Concomitant]
     Active Substance: ASCORBIC ACID
     Route: 048
     Dates: start: 20231018
  21. GABAPENTIN [Concomitant]
     Active Substance: GABAPENTIN
     Route: 048
     Dates: start: 20231023
  22. ACETAMINOPHEN [Concomitant]
     Active Substance: ACETAMINOPHEN
     Route: 048
     Dates: start: 20240202
  23. DULOXETINE [Concomitant]
     Active Substance: DULOXETINE
     Indication: Depressed mood
     Route: 048
     Dates: start: 20240202

REACTIONS (1)
  - Neuralgia [Recovering/Resolving]

NARRATIVE: CASE EVENT DATE: 20220705
